FAERS Safety Report 15623901 (Version 3)
Quarter: 2025Q1

REPORT INFORMATION
  Report Type: Report from Study
  Country: CA (occurrence: CA)
  Receive Date: 20181115
  Receipt Date: 20250305
  Transmission Date: 20250408
  Serious: Yes (Other)
  Sender: AMGEN
  Company Number: CA-AMGEN-CANSP2018162619

PATIENT
  Age: 76 Year
  Sex: Male

DRUGS (21)
  1. ENBREL [Suspect]
     Active Substance: ETANERCEPT
     Indication: Rheumatoid arthritis
     Dosage: 50 MILLIGRAM, QWK
     Route: 065
     Dates: end: 20230505
  2. ENBREL [Suspect]
     Active Substance: ETANERCEPT
     Dosage: 50 MILLIGRAM, QWK
     Route: 065
     Dates: start: 20240425
  3. ERELZI [Suspect]
     Active Substance: ETANERCEPT-SZZS
     Indication: Product used for unknown indication
     Route: 065
  4. ETANERCEPT [Suspect]
     Active Substance: ETANERCEPT
     Indication: Product used for unknown indication
     Route: 065
  5. METHOTREXATE [Concomitant]
     Active Substance: METHOTREXATE
     Dosage: 12.5 MILLIGRAM, QWK
     Route: 058
  6. FOLIC ACID [Concomitant]
     Active Substance: FOLIC ACID
  7. LANSOPRAZOLE [Concomitant]
     Active Substance: LANSOPRAZOLE
  8. XARELTO [Concomitant]
     Active Substance: RIVAROXABAN
  9. SOTALOL [Concomitant]
     Active Substance: SOTALOL
  10. INDACATEROL ACETATE\MOMETASONE FUROATE [Concomitant]
     Active Substance: INDACATEROL ACETATE\MOMETASONE FUROATE
  11. METAMUCIL [Concomitant]
     Active Substance: PLANTAGO SEED
  12. HYLOREL [Concomitant]
     Active Substance: GUANADREL SULFATE
  13. EZETIMIBE [Concomitant]
     Active Substance: EZETIMIBE
  14. CODEINE PHOSPHATE [Concomitant]
     Active Substance: CODEINE PHOSPHATE
  15. ZOPICLONE [Concomitant]
     Active Substance: ZOPICLONE
  16. OMEGA-3 ACIDS [Concomitant]
     Active Substance: OMEGA-3 FATTY ACIDS
  17. TAMSULOSIN [Concomitant]
     Active Substance: TAMSULOSIN
     Dates: start: 202408
  18. VITAMIN D [Concomitant]
     Active Substance: VITAMIN D NOS
     Dosage: 1000 INTERNATIONAL UNIT, QD
  19. VITAMIN E [Concomitant]
     Active Substance: .ALPHA.-TOCOPHEROL
  20. CALCIUM [Concomitant]
     Active Substance: CALCIUM
  21. B12 [Concomitant]
     Dosage: MONTHLY INJECTIONS

REACTIONS (7)
  - Rheumatoid arthritis [Unknown]
  - Musculoskeletal disorder [Unknown]
  - Therapeutic product effect decreased [Unknown]
  - Abdominal discomfort [Unknown]
  - Blood creatinine increased [Unknown]
  - Osteoarthritis [Unknown]
  - Therapy interrupted [Unknown]

NARRATIVE: CASE EVENT DATE: 20180101
